FAERS Safety Report 17004824 (Version 1)
Quarter: 2019Q4

REPORT INFORMATION
  Report Type: Spontaneous
  Country: BE (occurrence: BE)
  Receive Date: 20191107
  Receipt Date: 20191107
  Transmission Date: 20200122
  Serious: Yes (Other)
  Sender: FDA-Public Use
  Company Number: BE-MYLANLABS-2019M1106922

PATIENT
  Age: 60 Year
  Sex: Male

DRUGS (4)
  1. GEFITINIB. [Suspect]
     Active Substance: GEFITINIB
     Indication: LUNG ADENOCARCINOMA
     Dosage: 250 MILLIGRAM, QD
     Route: 065
  2. TRASTUZUMAB. [Suspect]
     Active Substance: TRASTUZUMAB
     Indication: LUNG ADENOCARCINOMA
     Dosage: LOADING DOSE
     Route: 065
  3. OSIMERTINIB. [Concomitant]
     Active Substance: OSIMERTINIB
     Indication: LUNG ADENOCARCINOMA
     Dosage: 80 MILLIGRAM, QD
     Route: 065
  4. TRASTUZUMAB. [Suspect]
     Active Substance: TRASTUZUMAB
     Dosage: 2 MILLIGRAM, QW
     Route: 065

REACTIONS (2)
  - Off label use [Unknown]
  - Drug resistance [Unknown]
